FAERS Safety Report 10330813 (Version 2)
Quarter: 2014Q4

REPORT INFORMATION
  Report Type: Report from Study
  Country: US (occurrence: US)
  Receive Date: 20140722
  Receipt Date: 20141017
  Transmission Date: 20150528
  Serious: No
  Sender: FDA-Public Use
  Company Number: US-AMGEN INC.-USASP2014054505

PATIENT
  Age: 71 Year
  Sex: Female

DRUGS (1)
  1. ENBREL [Suspect]
     Active Substance: ETANERCEPT
     Indication: RHEUMATOID ARTHRITIS
     Dosage: 50 MG, QWK
     Route: 065
     Dates: start: 20140527

REACTIONS (4)
  - Unevaluable event [Not Recovered/Not Resolved]
  - Malaise [Recovered/Resolved]
  - Urinary tract infection [Not Recovered/Not Resolved]
  - Personality change [Unknown]

NARRATIVE: CASE EVENT DATE: 2014
